FAERS Safety Report 25308596 (Version 1)
Quarter: 2025Q2

REPORT INFORMATION
  Report Type: Spontaneous
  Country: US (occurrence: US)
  Receive Date: 20250513
  Receipt Date: 20250513
  Transmission Date: 20250717
  Serious: No
  Sender: SANOFI AVENTIS
  Company Number: US-SA-2025SA133398

PATIENT
  Sex: Female

DRUGS (18)
  1. DUPIXENT [Suspect]
     Active Substance: DUPILUMAB
     Indication: Chronic obstructive pulmonary disease
     Dosage: 300 MG, QOW
     Route: 058
  2. ALBUTEROL [Concomitant]
     Active Substance: ALBUTEROL
  3. AZITHROMYCIN [Concomitant]
     Active Substance: AZITHROMYCIN
  4. BREZTRI [Concomitant]
     Active Substance: BUDESONIDE\FORMOTEROL\GLYCOPYRROLATE
  5. DULOXETINE HYDROCHLORIDE [Concomitant]
     Active Substance: DULOXETINE HYDROCHLORIDE
  6. GABAPENTIN [Concomitant]
     Active Substance: GABAPENTIN
  7. INSULIN LISPRO [Concomitant]
     Active Substance: INSULIN LISPRO
  8. JANUMET [Concomitant]
     Active Substance: METFORMIN HYDROCHLORIDE\SITAGLIPTIN PHOSPHATE
  9. METOPROLOL [Concomitant]
     Active Substance: METOPROLOL
  10. MOMETASONE FUROATE [Concomitant]
     Active Substance: MOMETASONE FUROATE
  11. MONTELUKAST [Concomitant]
     Active Substance: MONTELUKAST
  12. OHTUVAYRE [Concomitant]
     Active Substance: ENSIFENTRINE
  13. OMEPRAZOLE [Concomitant]
     Active Substance: OMEPRAZOLE
  14. PENTOXIFYLLINE [Concomitant]
     Active Substance: PENTOXIFYLLINE
  15. PREDNISONE [Concomitant]
     Active Substance: PREDNISONE
  16. ROFLUMILAST [Concomitant]
     Active Substance: ROFLUMILAST
  17. ROPINIROLE [Concomitant]
     Active Substance: ROPINIROLE
  18. OXYGEN [Concomitant]
     Active Substance: OXYGEN

REACTIONS (1)
  - Diarrhoea [Not Recovered/Not Resolved]
